FAERS Safety Report 10210703 (Version 3)
Quarter: 2014Q3

REPORT INFORMATION
  Report Type: Report from Study
  Country: US (occurrence: US)
  Receive Date: 20140602
  Receipt Date: 20140721
  Transmission Date: 20150326
  Serious: Yes (Other)
  Sender: FDA-Public Use
  Company Number: US-ABBVIE-14P-163-1242364-00

PATIENT
  Age: 43 Year
  Sex: Female

DRUGS (3)
  1. 6-MP [Concomitant]
     Active Substance: MERCAPTOPURINE
     Indication: CROHN^S DISEASE
  2. HUMIRA [Suspect]
     Active Substance: ADALIMUMAB
     Indication: CROHN^S DISEASE
     Dates: start: 20140218
  3. BIRTH CONTROL PILLS [Concomitant]
     Active Substance: UNSPECIFIED INGREDIENT
     Indication: PRODUCT USED FOR UNKNOWN INDICATION
     Dates: end: 20140605

REACTIONS (19)
  - Stomatitis [Recovered/Resolved]
  - Joint swelling [Unknown]
  - Arthralgia [Unknown]
  - Injection site pain [Unknown]
  - Psoriatic arthropathy [Unknown]
  - Oral pain [Unknown]
  - Hypophagia [Unknown]
  - Immunosuppression [Unknown]
  - Herpes simplex [Unknown]
  - Arthralgia [Unknown]
  - Ovarian cyst [Not Recovered/Not Resolved]
  - Injection site bruising [Unknown]
  - Oral pain [Recovered/Resolved]
  - Osteoarthritis [Unknown]
  - Injection site pain [Unknown]
  - Injection site erythema [Unknown]
  - Injection site rash [Unknown]
  - Activities of daily living impaired [Unknown]
  - Grip strength decreased [Unknown]

NARRATIVE: CASE EVENT DATE: 201402
